FAERS Safety Report 21188457 (Version 1)
Quarter: 2022Q3

REPORT INFORMATION
  Report Type: Spontaneous
  Country: US (occurrence: US)
  Receive Date: 20220809
  Receipt Date: 20220809
  Transmission Date: 20221027
  Serious: No
  Sender: FDA-Public Use
  Company Number: US-IGSA-BIG0017365

PATIENT
  Age: 76 Year
  Sex: Female

DRUGS (4)
  1. GAMUNEX-C [Suspect]
     Active Substance: HUMAN IMMUNOGLOBULIN G
     Indication: Chronic inflammatory demyelinating polyradiculoneuropathy
     Dosage: 40 GRAM, QD
     Route: 042
     Dates: start: 20220111
  2. GAMUNEX-C [Suspect]
     Active Substance: HUMAN IMMUNOGLOBULIN G
     Dosage: 50 GRAM, SINGLE
     Route: 042
     Dates: start: 20220112
  3. CRANBERRY EXTRAKT [Concomitant]
  4. GARLIC [ALLIUM SATIVUM BULB] [Concomitant]

REACTIONS (3)
  - Nausea [Recovered/Resolved]
  - Headache [Recovered/Resolved]
  - Fatigue [Recovered/Resolved]

NARRATIVE: CASE EVENT DATE: 20220111
